FAERS Safety Report 7927650-X (Version None)
Quarter: 2011Q4

REPORT INFORMATION
  Report Type: 
  Country: None (occurrence: None)
  Receive Date: 20111118
  Receipt Date: 20090409
  Transmission Date: 20120403
  Serious: Yes (Hospitalization, Other)
  Sender: FDA-Public Use
  Company Number: CA-ROCHE-624758

PATIENT
  Sex: Female
  Weight: 64.3 kg

DRUGS (22)
  1. ACETAMINOPHEN [Suspect]
     Indication: PRODUCT USED FOR UNKNOWN INDICATION
     Route: 065
  2. CIPROFLOXACIN [Suspect]
     Indication: PRODUCT USED FOR UNKNOWN INDICATION
     Route: 048
     Dates: start: 20090401, end: 20090403
  3. CODEINE SUL TAB [Concomitant]
     Dates: start: 20090323, end: 20090328
  4. SENNA [Concomitant]
     Dosage: DOSE: 2TO 6
     Dates: start: 20090328, end: 20090402
  5. ESCITALOPRAM OXALATE [Suspect]
     Indication: PRODUCT USED FOR UNKNOWN INDICATION
     Route: 065
  6. TRAZODONE HCL [Concomitant]
  7. GRAVOL TAB [Concomitant]
     Dates: start: 20090329, end: 20090330
  8. DOCETAXEL [Suspect]
     Route: 042
  9. MORPHINE [Suspect]
     Indication: PRODUCT USED FOR UNKNOWN INDICATION
     Dosage: FREQUENCY: Q 4 HRS PRN
     Route: 065
     Dates: start: 20090328, end: 20090401
  10. CEFTAZIDIME [Concomitant]
     Dates: start: 20090327, end: 20090328
  11. DOCETAXEL [Suspect]
     Indication: BREAST CANCER
     Dosage: FORM: VIAL. TOTAL DOSE: 126.8 MG. DATE OF LAST DOSE PRIOR TO SAE: 18 MARCH 2009.
     Route: 042
  12. CARBOPLATIN [Suspect]
     Route: 042
  13. MOUTHWASH NOS [Concomitant]
     Dosage: DRUG NAME: CCI MOUTH WASH. DOSAGE: 30 CC
     Dates: start: 20090328, end: 20090331
  14. AVASTIN [Suspect]
     Indication: BREAST CANCER
     Dosage: FORM: VIAL. TOTAL DOSE: 960 MG. DATE OF LAST DOSE PRIOR TO SAE: 18 MARCH 2009.
     Route: 042
     Dates: start: 20090318, end: 20090406
  15. HERCEPTIN [Suspect]
     Indication: BREAST CANCER
     Dosage: FORM: VIAL. TOTAL DOSE: 512 MG. DATE OF LAST DOSE PRIOR TO SAE: 18 MARCH 2009. LOADING DOSE.
     Route: 042
  16. AMMONIUM CHLORIDE [Concomitant]
  17. LACTULOSE [Concomitant]
     Dosage: DOSE: 15 TO 30 ML
     Dates: start: 20090328, end: 20090329
  18. CARBOPLATIN [Suspect]
     Indication: BREAST CANCER
     Dosage: DOSE: 6 AUC. FORM:VIAL. TOTAL DOSE: 852 MG.DATE OF LAST DOSE PRIOR TO SAE:18 MAR 09.
     Route: 042
  19. DOCUSATE [Concomitant]
     Dosage: DOSE: 2 TO 6
     Dates: start: 20090328, end: 20090402
  20. CODEINE SUL TAB [Concomitant]
  21. HERCEPTIN [Suspect]
     Route: 042
  22. ESCITALOPRAM [Concomitant]

REACTIONS (3)
  - NEUTROPENIA [None]
  - PLEURAL EFFUSION [None]
  - BRADYCARDIA [None]
